APPROVED DRUG PRODUCT: FLURBIPROFEN
Active Ingredient: FLURBIPROFEN
Strength: 50MG
Dosage Form/Route: TABLET;ORAL
Application: A074411 | Product #001
Applicant: IVAX PHARMACEUTICALS INC SUB TEVA PHARMACEUTICALS USA
Approved: May 31, 1995 | RLD: No | RS: No | Type: DISCN